FAERS Safety Report 19869962 (Version 2)
Quarter: 2025Q2

REPORT INFORMATION
  Report Type: Spontaneous
  Country: FR (occurrence: FR)
  Receive Date: 20210923
  Receipt Date: 20250526
  Transmission Date: 20250717
  Serious: Yes (Other)
  Sender: ROCHE
  Company Number: FR-ROCHE-2911776

PATIENT
  Age: 53 Year
  Sex: Male

DRUGS (1)
  1. TOCILIZUMAB [Suspect]
     Active Substance: TOCILIZUMAB
     Indication: Rheumatoid arthritis
     Route: 058

REACTIONS (3)
  - Injection site pain [Unknown]
  - Peritonitis [Unknown]
  - Product storage error [Unknown]
